FAERS Safety Report 9988138 (Version 1)
Quarter: 2014Q1

REPORT INFORMATION
  Report Type: Spontaneous
  Country: US (occurrence: US)
  Receive Date: 20140308
  Receipt Date: 20140308
  Transmission Date: 20141002
  Serious: No
  Sender: FDA-Public Use
  Company Number: US-ABBVIE-13P-163-1091599-00

PATIENT
  Age: 58 Year
  Sex: Male
  Weight: 132.57 kg

DRUGS (15)
  1. HUMIRA [Suspect]
     Indication: RHEUMATOID ARTHRITIS
     Route: 058
     Dates: start: 201302
  2. METHOTREXATE [Suspect]
     Indication: RHEUMATOID ARTHRITIS
     Route: 048
  3. DEPAKOTE [Concomitant]
     Indication: CONVULSION
  4. DEPAKOTE [Concomitant]
     Indication: DEPRESSION
  5. IBUPROFEN [Concomitant]
     Indication: ARTHRITIS
  6. WELLBUTRIN [Concomitant]
     Indication: DEPRESSION
  7. RISPERIDONE [Concomitant]
     Indication: DEPRESSION
  8. BUPROPION [Concomitant]
     Indication: PRODUCT USED FOR UNKNOWN INDICATION
  9. FOLIC ACID [Concomitant]
     Indication: VITAMIN SUPPLEMENTATION
  10. TRAMADOL [Concomitant]
     Indication: PAIN
     Dosage: EVERY SIX HOURS AS NEEDED
  11. PREDNISONE [Concomitant]
     Indication: PAIN
  12. PREDNISONE [Concomitant]
     Indication: SWELLING
  13. OMEPRAZOLE [Concomitant]
     Indication: PRODUCT USED FOR UNKNOWN INDICATION
  14. ADVAIR [Concomitant]
     Indication: CHRONIC OBSTRUCTIVE PULMONARY DISEASE
     Route: 055
  15. PROAIR [Concomitant]
     Indication: CHRONIC OBSTRUCTIVE PULMONARY DISEASE
     Route: 055

REACTIONS (3)
  - Dizziness [Recovered/Resolved]
  - Nausea [Not Recovered/Not Resolved]
  - Somnolence [Not Recovered/Not Resolved]
